FAERS Safety Report 4630279-2 (Version None)
Quarter: 2005Q2

REPORT INFORMATION
  Report Type: 
  Country: None (occurrence: None)
  Receive Date: 20050406
  Receipt Date: 20050329
  Transmission Date: 20051028
  Serious: Yes (Death)
  Sender: FDA-Public Use
  Company Number: 213333

PATIENT
  Age: 56 Year
  Sex: Male
  Weight: 90 kg

DRUGS (8)
  1. BEVACIZUMAB OR PLACEBO(BEVACIZUMAB OR PLACEBO) PWDR + SOLVENT,INFUSION [Suspect]
     Indication: COLORECTAL CANCER METASTATIC
     Dosage: 7.5 MG/KG Q3W INTRAVENOUS
     Route: 042
     Dates: start: 20040824
  2. CAPECITABINE (CAPECITABINE) [Suspect]
     Indication: COLORECTAL CANCER METASTATIC
     Dosage: 1000 MG/M2 BID ORAL
     Route: 048
     Dates: start: 20040824
  3. OXALIPLATIN (OXALIPLATIN) [Suspect]
     Indication: COLORECTAL CANCER METASTATIC
     Dosage: 130 MG/M2 Q3W  INTRAVENOUS
     Route: 042
     Dates: start: 20040824
  4. WARFARIN SODIUM [Concomitant]
  5. MULTI-VITAMINS [Concomitant]
  6. GRANISETRON (GRANISETRON HYDROCHLORIDE) [Concomitant]
  7. DEXAMETHASONE [Concomitant]
  8. ZOPICLONE (ZOPICLONE) [Concomitant]

REACTIONS (1)
  - COMA [None]
